FAERS Safety Report 9351242 (Version 1)
Quarter: 2013Q2

REPORT INFORMATION
  Report Type: Spontaneous
  Country: US (occurrence: US)
  Receive Date: 20130617
  Receipt Date: 20130617
  Transmission Date: 20140414
  Serious: No
  Sender: FDA-Public Use
  Company Number: US-UPSHER-SMITH LABORATORIES, INC.-13001471

PATIENT
  Sex: Female

DRUGS (8)
  1. KLOR-CON TABLETS [Suspect]
     Indication: MINERAL SUPPLEMENTATION
     Dosage: 10 MEQ, BID
     Dates: start: 2005, end: 2012
  2. KLOR-CON TABLETS [Suspect]
     Dosage: 10 MEQ, QD
     Route: 048
     Dates: start: 2012
  3. CITALOPRAM [Concomitant]
     Dosage: UNK
  4. LIPITOR [Concomitant]
     Dosage: UNK
  5. AMBIEN [Concomitant]
     Dosage: UNK
  6. ZYRTEC                             /00884302/ [Concomitant]
     Dosage: UNK
  7. CARBIDOPA/LEVODOPA [Concomitant]
     Dosage: UNK
  8. VITAMINS NOS [Concomitant]
     Dosage: UNK

REACTIONS (2)
  - Diarrhoea [Not Recovered/Not Resolved]
  - Flatulence [Not Recovered/Not Resolved]
